FAERS Safety Report 7232889-5 (Version None)
Quarter: 2011Q1

REPORT INFORMATION
  Report Type: 
  Country: None (occurrence: None)
  Receive Date: 20110119
  Receipt Date: 20110112
  Transmission Date: 20110831
  Serious: Yes (Hospitalization, Other)
  Sender: FDA-Public Use
  Company Number: US-PFIZER INC-US-WYE-H16776210

PATIENT
  Sex: Female
  Weight: 78.5 kg

DRUGS (10)
  1. ACETYLSALICYLIC ACID [Concomitant]
  2. PANTOPRAZOLE [Concomitant]
  3. MICARDIS [Concomitant]
     Route: 065
  4. EFFEXOR XR [Suspect]
     Dosage: LOWEST DOSE
     Route: 065
     Dates: start: 20060101, end: 20060101
  5. ZOCOR [Concomitant]
     Route: 065
  6. EFFEXOR [Suspect]
     Dosage: LOWEST DOSE
     Route: 065
     Dates: start: 20060101, end: 20060101
  7. METOPROLOL [Concomitant]
     Route: 065
  8. WELLBUTRIN [Suspect]
     Dosage: UNKNOWN
     Route: 065
  9. KLONOPIN [Concomitant]
     Route: 065
  10. PLAVIX [Concomitant]

REACTIONS (10)
  - BRAIN INJURY [None]
  - CORONARY ARTERIAL STENT INSERTION [None]
  - SINUSITIS [None]
  - PSYCHOMOTOR HYPERACTIVITY [None]
  - VERTIGO [None]
  - TRANSIENT ISCHAEMIC ATTACK [None]
  - CORONARY ARTERY BYPASS [None]
  - NONSPECIFIC REACTION [None]
  - SINUS DISORDER [None]
  - COGNITIVE DISORDER [None]
